FAERS Safety Report 12608728 (Version 1)
Quarter: 2016Q3

REPORT INFORMATION
  Report Type: Spontaneous
  Country: CA (occurrence: CA)
  Receive Date: 20160729
  Receipt Date: 20160729
  Transmission Date: 20161109
  Serious: Yes (Death, Hospitalization)
  Sender: FDA-Public Use
  Company Number: CA-HQ SPECIALTY-CA-2016INT000636

PATIENT
  Age: 59 Year
  Sex: Female

DRUGS (2)
  1. HYDROXYCHLOROQUINE [Suspect]
     Active Substance: HYDROXYCHLOROQUINE
     Indication: RHEUMATOID ARTHRITIS
     Dosage: 200-400 MG (1 IN 1 D)
  2. METHOTREXATE SODIUM. [Suspect]
     Active Substance: METHOTREXATE SODIUM
     Indication: RHEUMATOID ARTHRITIS
     Dosage: 15-25 MG (1 IN 1 W)

REACTIONS (8)
  - Demyelination [Unknown]
  - Cardiomyopathy [Unknown]
  - Pleural effusion [Unknown]
  - Fall [Unknown]
  - Cardiac failure [Fatal]
  - Complex partial seizures [Unknown]
  - Pericardial effusion [Unknown]
  - Seizure [Unknown]
